FAERS Safety Report 20816823 (Version 2)
Quarter: 2023Q2

REPORT INFORMATION
  Report Type: Spontaneous
  Country: US (occurrence: US)
  Receive Date: 20220512
  Receipt Date: 20230526
  Transmission Date: 20230721
  Serious: Yes (Other)
  Sender: FDA-Public Use
  Company Number: US-UCBSA-2021046742

PATIENT
  Sex: Female
  Weight: 47.6 kg

DRUGS (3)
  1. CIMZIA [Suspect]
     Active Substance: CERTOLIZUMAB PEGOL
     Indication: Rheumatoid arthritis
     Dosage: 200 MILLIGRAM, EV 2 WEEKS(QOW)
     Route: 058
     Dates: start: 202108
  2. CIMZIA [Suspect]
     Active Substance: CERTOLIZUMAB PEGOL
     Dosage: 200 MILLIGRAM, EV 2 WEEKS(QOW)
     Route: 058
  3. CIMZIA [Suspect]
     Active Substance: CERTOLIZUMAB PEGOL
     Dosage: 200 MILLIGRAM, EV 2 WEEKS(QOW)
     Route: 058

REACTIONS (15)
  - Hypertension [Unknown]
  - Back pain [Unknown]
  - Nausea [Recovering/Resolving]
  - Arthralgia [Unknown]
  - Dizziness [Unknown]
  - Diarrhoea [Unknown]
  - Palpitations [Unknown]
  - Headache [Recovering/Resolving]
  - Pain [Recovering/Resolving]
  - Sinus congestion [Unknown]
  - Abdominal pain [Recovering/Resolving]
  - Stress [Unknown]
  - Syringe issue [Unknown]
  - COVID-19 [Unknown]
  - Intentional dose omission [Unknown]
